FAERS Safety Report 22010989 (Version 1)
Quarter: 2023Q1

REPORT INFORMATION
  Report Type: Spontaneous
  Country: US (occurrence: US)
  Receive Date: 20230220
  Receipt Date: 20230220
  Transmission Date: 20230417
  Serious: No
  Sender: FDA-Public Use
  Company Number: US-SA-SAC20230217001272

PATIENT
  Age: 48 Year
  Sex: Female

DRUGS (3)
  1. THYROGEN [Suspect]
     Active Substance: THYROTROPIN ALFA
     Indication: Thyroid cancer
     Dosage: 0.9 MG, QD
     Route: 030
     Dates: start: 202302
  2. THYROGEN [Suspect]
     Active Substance: THYROTROPIN ALFA
     Indication: Lung neoplasm malignant
  3. THYROGEN [Suspect]
     Active Substance: THYROTROPIN ALFA
     Indication: Benign breast neoplasm

REACTIONS (2)
  - Nausea [Unknown]
  - Vomiting [Unknown]

NARRATIVE: CASE EVENT DATE: 20230201
